FAERS Safety Report 24878706 (Version 1)
Quarter: 2025Q1

REPORT INFORMATION
  Report Type: Spontaneous
  Country: US (occurrence: None)
  Receive Date: 20250122
  Receipt Date: 20250122
  Transmission Date: 20250408
  Serious: Yes (Hospitalization)
  Sender: FDA-CTU
  Company Number: None

PATIENT
  Age: 75 Year
  Sex: Male

DRUGS (1)
  1. CARVEDILOL [Suspect]
     Active Substance: CARVEDILOL
     Indication: Hypertension
     Dates: start: 20240213, end: 20241230

REACTIONS (4)
  - Bradycardia [None]
  - Asthenia [None]
  - Dizziness [None]
  - Therapy interrupted [None]

NARRATIVE: CASE EVENT DATE: 20241230
